FAERS Safety Report 9814255 (Version 2)
Quarter: 2014Q1

REPORT INFORMATION
  Report Type: Spontaneous
  Country: US (occurrence: US)
  Receive Date: 20140113
  Receipt Date: 20140113
  Transmission Date: 20141002
  Serious: No
  Sender: FDA-Public Use
  Company Number: US-ASTELLAS-2013US012930

PATIENT
  Sex: Male

DRUGS (2)
  1. MYRBETRIQ [Suspect]
     Indication: PROSTATE INFECTION
     Dosage: 12.5 MG, UID/QD
     Route: 048
     Dates: start: 20131204
  2. ANTIHYPERTENSIVES [Concomitant]
     Indication: BLOOD PRESSURE
     Dosage: UNK
     Route: 065

REACTIONS (3)
  - Wrong technique in drug usage process [Unknown]
  - Underdose [Unknown]
  - Off label use [Unknown]
